FAERS Safety Report 9931937 (Version 1)
Quarter: 2014Q1

REPORT INFORMATION
  Report Type: Spontaneous
  Country: US (occurrence: None)
  Receive Date: 20140226
  Receipt Date: 20140226
  Transmission Date: 20141002
  Serious: No
  Sender: FDA-Public Use
  Company Number: SYM-2013-00782

PATIENT
  Sex: Female

DRUGS (9)
  1. DILTIAZEM (DILTIAZEM) (DILTIAZEM) [Suspect]
     Indication: PRODUCT USED FOR UNKNOWN INDICATION
  2. FUROSEMIDE (FUROSEMIDE) (FUROSEMIDE) [Suspect]
     Indication: PRODUCT USED FOR UNKNOWN INDICATION
  3. DESIPRAMINE (DESIPRAMINE) (DESIPRAMINE) [Suspect]
     Indication: PRODUCT USED FOR UNKNOWN INDICATION
  4. CARVEDILOL [Suspect]
     Indication: PRODUCT USED FOR UNKNOWN INDICATION
  5. DIGOXIN (DIGOXIN) (DIGOXIN) [Suspect]
     Indication: PRODUCT USED FOR UNKNOWN INDICATION
  6. WARFARIN (WARFARIN) (WARFARIN) [Suspect]
     Indication: PRODUCT USED FOR UNKNOWN INDICATION
  7. SIMVASTATIN (SIMVASTATIN) (SIMVASTATIN) [Suspect]
     Indication: PRODUCT USED FOR UNKNOWN INDICATION
  8. LOSARTAN [Suspect]
     Indication: PRODUCT USED FOR UNKNOWN INDICATION
  9. POTASSIUM CHLORIDE (POTASSIUM CHLORIDE) (POTASSIUM CHLORIDE) [Suspect]
     Indication: PRODUCT USED FOR UNKNOWN INDICATION

REACTIONS (4)
  - Heart rate decreased [None]
  - Feeling abnormal [None]
  - Incorrect dose administered [None]
  - Wrong drug administered [None]
